FAERS Safety Report 5077376-8 (Version None)
Quarter: 2006Q3

REPORT INFORMATION
  Report Type: 
  Country: None (occurrence: None)
  Receive Date: 20060810
  Receipt Date: 20060206
  Transmission Date: 20061208
  Serious: No
  Sender: FDA-Public Use
  Company Number: US-GLAXOSMITHKLINE-A0592466A

PATIENT
  Age: 54 Year
  Sex: Female

DRUGS (5)
  1. PAXIL [Suspect]
     Indication: DEPRESSION
     Dosage: 20MG PER DAY
     Route: 048
  2. BUPROPION HCL [Suspect]
     Dosage: 150MG TWICE PER DAY
     Route: 048
  3. MICARDIS [Concomitant]
  4. HYDROCHLOROTHIAZIDE [Concomitant]
  5. LOPRESSOR [Concomitant]

REACTIONS (3)
  - DRUG INEFFECTIVE [None]
  - LIBIDO DECREASED [None]
  - WEIGHT INCREASED [None]
